FAERS Safety Report 18179695 (Version 1)
Quarter: 2020Q3

REPORT INFORMATION
  Report Type: Spontaneous
  Country: FR (occurrence: FR)
  Receive Date: 20200821
  Receipt Date: 20200821
  Transmission Date: 20201103
  Serious: Yes (Hospitalization)
  Sender: FDA-Public Use
  Company Number: FR-ACCORD-196618

PATIENT
  Age: 65 Year
  Sex: Male
  Weight: 69.5 kg

DRUGS (6)
  1. CISPLATIN ACCORD [Suspect]
     Active Substance: CISPLATIN
     Indication: BRONCHIAL CARCINOMA
     Dosage: 1 MG / ML
     Route: 041
     Dates: start: 20200605, end: 20200605
  2. CISPLATIN ACCORD [Suspect]
     Active Substance: CISPLATIN
     Indication: BRONCHIAL CARCINOMA
     Dosage: 1 MG / ML
     Route: 041
     Dates: start: 20200607, end: 20200607
  3. NAVELBINE [Suspect]
     Active Substance: VINORELBINE TARTRATE
     Indication: BRONCHIAL CARCINOMA
     Route: 041
     Dates: start: 20200605, end: 20200606
  4. EMEND [Concomitant]
     Active Substance: APREPITANT
  5. ZOPHREN [Concomitant]
     Active Substance: ONDANSETRON
  6. SOLU?MEDROL [Concomitant]
     Active Substance: METHYLPREDNISOLONE SODIUM SUCCINATE

REACTIONS (1)
  - Pericarditis [Recovering/Resolving]

NARRATIVE: CASE EVENT DATE: 20200607
